FAERS Safety Report 8289786-6 (Version None)
Quarter: 2012Q2

REPORT INFORMATION
  Report Type: 
  Country: None (occurrence: None)
  Receive Date: 20120417
  Receipt Date: 20120412
  Transmission Date: 20120825
  Serious: No
  Sender: FDA-Public Use
  Company Number: US-PFIZER INC-2012092093

PATIENT
  Sex: Female

DRUGS (3)
  1. COPAXONE [Concomitant]
     Indication: MULTIPLE SCLEROSIS
     Dosage: UNK
  2. NEURONTIN [Suspect]
     Dosage: 600 MG
  3. NEURONTIN [Suspect]
     Indication: PARTIAL SEIZURES
     Dosage: 300 MG
     Dates: end: 20060101

REACTIONS (2)
  - DRUG INEFFECTIVE [None]
  - MUSCLE STRAIN [None]
